FAERS Safety Report 10923725 (Version 2)
Quarter: 2015Q2

REPORT INFORMATION
  Report Type: Report from Study
  Country: US (occurrence: US)
  Receive Date: 20150318
  Receipt Date: 20150410
  Transmission Date: 20150821
  Serious: Yes (Life-Threatening, Other)
  Sender: FDA-Public Use
  Company Number: US-009507513-1503USA006354

PATIENT

DRUGS (3)
  1. TAXOL [Concomitant]
     Active Substance: PACLITAXEL
     Dosage: 135 MG/M2, QD, A 3-HOUR I.V. INFUSION ON DAY 1 OF EACH 3-WEEK TREATMENT CYCLE FOR UP TO 6 CYCLES
     Route: 042
  2. ZOCOR [Suspect]
     Active Substance: SIMVASTATIN
     Dosage: 80 MG, QD
     Route: 048
  3. VOTRIENT [Interacting]
     Active Substance: PAZOPANIB HYDROCHLORIDE
     Indication: NEOPLASM
     Dosage: 400 MG, BID

REACTIONS (3)
  - Aspartate aminotransferase increased [Recovered/Resolved]
  - Drug interaction [Recovered/Resolved]
  - Alanine aminotransferase increased [Recovered/Resolved]
